FAERS Safety Report 4487566-0 (Version None)
Quarter: 2004Q4

REPORT INFORMATION
  Report Type: 
  Country: None (occurrence: None)
  Receive Date: 20041028
  Receipt Date: 20041018
  Transmission Date: 20050328
  Serious: Yes (Hospitalization)
  Sender: FDA-Public Use
  Company Number: CA-JNJFOC-20040600557

PATIENT
  Sex: Female
  Weight: 70.1 kg

DRUGS (14)
  1. REMICADE [Suspect]
     Route: 042
  2. REMICADE [Suspect]
     Indication: RHEUMATOID ARTHRITIS
     Route: 042
  3. METHOTREXATE [Concomitant]
     Indication: RHEUMATOID ARTHRITIS
     Route: 049
  4. METFORMIN HCL [Concomitant]
     Route: 049
  5. FOLIC ACID [Concomitant]
     Route: 049
  6. PREDNISONE [Concomitant]
     Indication: RHEUMATOID ARTHRITIS
     Dosage: 7.5 MG 1 1/2 TABLET DAILY
     Route: 049
  7. VIOXX [Concomitant]
     Indication: RHEUMATOID ARTHRITIS
  8. FOSAMAX [Concomitant]
     Indication: OSTEOPOROSIS
  9. CALCIUM 500 MG + VITAMIN D [Concomitant]
  10. CALCIUM 500 MG + VITAMIN D [Concomitant]
  11. CALCIUM 500 MG + VITAMIN D [Concomitant]
     Indication: OSTEOPOROSIS
     Dosage: BID
  12. INSULIN NOVOLIN 20/80 [Concomitant]
     Dosage: IN AM
  13. NOVOLIN INSULIN 50\50 [Concomitant]
     Dosage: AT SUPPER
  14. TYLENOL [Concomitant]
     Dosage: 2 TABLETS Q 6H PRN

REACTIONS (8)
  - ARTHRITIS [None]
  - BLOOD GLUCOSE INCREASED [None]
  - CELLULITIS [None]
  - CHONDROPATHY [None]
  - CRYSTAL ARTHROPATHY [None]
  - DRUG INEFFECTIVE [None]
  - LOCALISED OSTEOARTHRITIS [None]
  - PAIN IN EXTREMITY [None]
